FAERS Safety Report 9475227 (Version 1)
Quarter: 2013Q3

REPORT INFORMATION
  Report Type: Spontaneous
  Country: US (occurrence: None)
  Receive Date: 20130822
  Receipt Date: 20130822
  Transmission Date: 20140515
  Serious: Yes (Other)
  Sender: FDA-Public Use
  Company Number: None

PATIENT
  Age: 73 None
  Sex: Male

DRUGS (5)
  1. PRADAXA [Suspect]
     Indication: ATRIAL FIBRILLATION
     Dosage: 2 CAPS DAILY TWICE DAILY MOUTH
     Route: 048
     Dates: start: 20130620, end: 20130808
  2. PRADAXA [Suspect]
     Indication: ANTICOAGULANT THERAPY
     Dosage: 2 CAPS DAILY TWICE DAILY MOUTH
     Route: 048
     Dates: start: 20130620, end: 20130808
  3. ALLOPURINOL [Concomitant]
  4. DIGOXIN [Concomitant]
  5. ASPIRIN [Concomitant]

REACTIONS (1)
  - Anorectal disorder [None]
